FAERS Safety Report 12574412 (Version 2)
Quarter: 2016Q3

REPORT INFORMATION
  Report Type: Spontaneous
  Country: CA (occurrence: CA)
  Receive Date: 20160720
  Receipt Date: 20160921
  Transmission Date: 20161109
  Serious: Yes (Other)
  Sender: FDA-Public Use
  Company Number: CA-GLAXOSMITHKLINE-CA2016GSK102486

PATIENT
  Age: 80 Year
  Sex: Female

DRUGS (14)
  1. JAKAFI [Suspect]
     Active Substance: RUXOLITINIB
     Dosage: 2 DF, BID
     Route: 048
  2. LIPITOR [Concomitant]
     Active Substance: ATORVASTATIN CALCIUM
  3. JAKAFI [Suspect]
     Active Substance: RUXOLITINIB
     Indication: MYELOFIBROSIS
     Dosage: 10 MG, BID
     Route: 048
     Dates: start: 20130815
  4. ASA [Concomitant]
     Active Substance: ASPIRIN
  5. CITALOPRAM [Concomitant]
     Active Substance: CITALOPRAM HYDROBROMIDE
  6. JAKAFI [Suspect]
     Active Substance: RUXOLITINIB
     Dosage: 20 MG, 1D
     Route: 048
  7. JAKAFI [Suspect]
     Active Substance: RUXOLITINIB
     Dosage: 5 MG, BID
     Route: 048
  8. JAKAFI [Suspect]
     Active Substance: RUXOLITINIB
     Dosage: 3 DF, TID
     Route: 048
  9. JAKAFI [Suspect]
     Active Substance: RUXOLITINIB
     Dosage: 5 MG, BID
     Route: 048
     Dates: start: 20131126
  10. JAKAFI [Suspect]
     Active Substance: RUXOLITINIB
     Dosage: 15 MG, 1D
     Route: 048
  11. VOLTAREN [Suspect]
     Active Substance: DICLOFENAC SODIUM
     Indication: ARTHRITIS
     Dosage: UNK, QD
     Route: 061
  12. JAKAFI [Suspect]
     Active Substance: RUXOLITINIB
     Dosage: 15 MG, 1D
     Route: 048
  13. CALCIUM [Concomitant]
     Active Substance: CALCIUM
  14. CELEBREX [Concomitant]
     Active Substance: CELECOXIB

REACTIONS (25)
  - Abdominal pain [Unknown]
  - Vascular rupture [Unknown]
  - Neuralgia [Unknown]
  - Arthralgia [Unknown]
  - Platelet count decreased [Unknown]
  - Anaemia [Not Recovered/Not Resolved]
  - Haemoglobin decreased [Unknown]
  - Abdominal distension [Unknown]
  - Peripheral vascular disorder [Unknown]
  - Pain [Unknown]
  - Weight increased [Unknown]
  - Dry mouth [Unknown]
  - Vomiting [Unknown]
  - Renal pain [Unknown]
  - Peripheral swelling [Unknown]
  - Loss of consciousness [Unknown]
  - Pruritus [Not Recovered/Not Resolved]
  - Pain in extremity [Unknown]
  - Flatulence [Unknown]
  - Drug ineffective [Unknown]
  - Initial insomnia [Unknown]
  - Contusion [Unknown]
  - Muscle spasms [Unknown]
  - Increased appetite [Unknown]
  - Fatigue [Unknown]

NARRATIVE: CASE EVENT DATE: 20150625
